FAERS Safety Report 12339081 (Version 1)
Quarter: 2016Q2

REPORT INFORMATION
  Report Type: Spontaneous
  Country: US (occurrence: US)
  Receive Date: 20160505
  Receipt Date: 20160505
  Transmission Date: 20160815
  Serious: No
  Sender: FDA-Public Use
  Company Number: US-MAYNE PHARMA-2015MYN000077

PATIENT
  Age: 6 Year
  Sex: Female
  Weight: 14.06 kg

DRUGS (2)
  1. NATURE-THROID [Concomitant]
     Active Substance: THYROID, PORCINE
     Indication: THYROID DISORDER
     Dosage: UNK
     Dates: start: 201502
  2. LIOTHYRONINE [Suspect]
     Active Substance: LIOTHYRONINE
     Indication: THYROID DISORDER
     Dosage: 10 MCG QHS AND 5 MCG QAM
     Route: 048
     Dates: start: 2014

REACTIONS (1)
  - Blood aluminium [Recovered/Resolved]

NARRATIVE: CASE EVENT DATE: 201508
